FAERS Safety Report 9998026 (Version 1)
Quarter: 2014Q1

REPORT INFORMATION
  Report Type: Report from Study
  Country: JP (occurrence: JP)
  Receive Date: 20140311
  Receipt Date: 20140311
  Transmission Date: 20141002
  Serious: Yes (Death)
  Sender: FDA-Public Use
  Company Number: JP-PFIZER INC-2014066962

PATIENT
  Age: 9 Month
  Sex: Male
  Weight: 4.53 kg

DRUGS (5)
  1. REVATIO [Suspect]
     Indication: PULMONARY ARTERIAL HYPERTENSION
     Dosage: 1 MG, 3X/DAY
     Route: 048
     Dates: start: 20100129, end: 20100810
  2. LASIX [Concomitant]
     Indication: CARDIAC FAILURE
     Dosage: UNK
     Route: 048
     Dates: end: 20100810
  3. ASPIRIN [Concomitant]
     Indication: ANTICOAGULANT THERAPY
     Dosage: UNK
     Route: 048
     Dates: end: 20100810
  4. RENIVACE [Concomitant]
     Indication: CARDIAC FAILURE
     Dosage: UNK
     Route: 048
     Dates: end: 20100810
  5. NEWTOLIDE [Concomitant]
     Indication: CARDIAC FAILURE
     Dosage: UNK
     Route: 048
     Dates: start: 20100422, end: 20100810

REACTIONS (1)
  - Death [Fatal]
